FAERS Safety Report 6529467-X (Version None)
Quarter: 2010Q1

REPORT INFORMATION
  Report Type: 
  Country: None (occurrence: None)
  Receive Date: 20100107
  Receipt Date: 20100104
  Transmission Date: 20100710
  Serious: Yes (Hospitalization)
  Sender: FDA-Public Use
  Company Number: US-BAYER-200937338NA

PATIENT
  Age: 38 Year
  Sex: Female

DRUGS (2)
  1. ULTRAVIST (PHARMACY BULK) [Suspect]
     Indication: COMPUTERISED TOMOGRAM ABDOMEN
     Dosage: 2 CC/SEC, POWER INJECTOR AND WARMER USED (37.5 C)
     Route: 042
  2. ORAL CONTAST [Concomitant]
     Route: 048

REACTIONS (4)
  - ERYTHEMA [None]
  - HYPERSENSITIVITY [None]
  - PRURITUS [None]
  - URTICARIA [None]
